FAERS Safety Report 7869020-9 (Version None)
Quarter: 2011Q4

REPORT INFORMATION
  Report Type: 
  Country: None (occurrence: None)
  Receive Date: 20111028
  Receipt Date: 20101223
  Transmission Date: 20120403
  Serious: No
  Sender: FDA-Public Use
  Company Number: US-AMGEN-USASP2010011034

PATIENT
  Sex: Female

DRUGS (6)
  1. METHOTREXATE [Concomitant]
     Dosage: 2.5 MG, UNK
  2. ENBREL [Suspect]
     Indication: PRODUCT USED FOR UNKNOWN INDICATION
     Dosage: 25 MG, 2 TIMES/WK
     Route: 058
  3. PREVACID [Concomitant]
     Dosage: 15 MG, UNK
  4. BONIVA [Concomitant]
     Dosage: 150 MG, UNK
  5. FOLIC ACID [Concomitant]
     Dosage: 1 MG, UNK
  6. MOBIC [Concomitant]
     Dosage: 7.5 MG, UNK

REACTIONS (2)
  - PAIN IN EXTREMITY [None]
  - NERVE ROOT COMPRESSION [None]
